FAERS Safety Report 6744325-3 (Version None)
Quarter: 2010Q2

REPORT INFORMATION
  Report Type: 
  Country: None (occurrence: None)
  Receive Date: 20100527
  Receipt Date: 20100514
  Transmission Date: 20101027
  Serious: Yes (Other)
  Sender: FDA-Public Use
  Company Number: ES-ELI_LILLY_AND_COMPANY-ES201005006079

PATIENT
  Age: 46 Year
  Sex: Female

DRUGS (3)
  1. CYMBALTA [Suspect]
     Dosage: 30 MG, UNKNOWN
     Route: 048
     Dates: start: 20100303, end: 20100304
  2. LEVOTHYROXINE SODIUM [Concomitant]
     Dosage: 75 MG, UNKNOWN
     Route: 065
     Dates: start: 20061220
  3. LORAZEPAM [Concomitant]
     Dosage: UNK, UNKNOWN
     Route: 065
     Dates: start: 20100303

REACTIONS (1)
  - LOSS OF CONSCIOUSNESS [None]
